FAERS Safety Report 24593485 (Version 1)
Quarter: 2024Q4

REPORT INFORMATION
  Report Type: Other
  Country: TR (occurrence: TR)
  Receive Date: 20241108
  Receipt Date: 20241108
  Transmission Date: 20250115
  Serious: Yes (Other)
  Sender: B BRAUN
  Company Number: TR-B.Braun Medical Inc.-2164713

PATIENT
  Age: 33 Month
  Sex: Female

DRUGS (2)
  1. ACETAMINOPHEN [Suspect]
     Active Substance: ACETAMINOPHEN
     Indication: Restlessness
  2. CHLORPHENIRAMINE MALEATE [Suspect]
     Active Substance: CHLORPHENIRAMINE MALEATE

REACTIONS (4)
  - Dystonia [Recovered/Resolved]
  - Off label use [Recovered/Resolved]
  - Toxicity to various agents [Recovered/Resolved]
  - Oculogyric crisis [Recovered/Resolved]
